FAERS Safety Report 7182948-0 (Version None)
Quarter: 2010Q4

REPORT INFORMATION
  Report Type: 
  Country: None (occurrence: None)
  Receive Date: 20101208
  Receipt Date: 20101116
  Transmission Date: 20110411
  Serious: Yes (Hospitalization)
  Sender: FDA-Public Use
  Company Number: GB-021455

PATIENT
  Age: 82 Year
  Sex: Male

DRUGS (7)
  1. CHLORAMBUCIL [Suspect]
     Indication: CHRONIC LYMPHOCYTIC LEUKAEMIA
     Route: 048
     Dates: start: 20100924
  2. OFATUMUMAB [Suspect]
     Indication: CHRONIC LYMPHOCYTIC LEUKAEMIA
     Dosage: INTRAVENOUS
     Route: 042
     Dates: start: 20100923
  3. FUROSEMIDE [Concomitant]
  4. AMLODIPINE [Concomitant]
  5. BISOPROLOL [Concomitant]
  6. SIMVASTATIN [Concomitant]
  7. ACETYLSALICYLIC ACID [Concomitant]

REACTIONS (5)
  - CARDIAC MURMUR [None]
  - DIZZINESS [None]
  - HEADACHE [None]
  - PHOTOPSIA [None]
  - TREMOR [None]
